FAERS Safety Report 9632917 (Version 2)
Quarter: 2013Q4

REPORT INFORMATION
  Report Type: Spontaneous
  Country: US (occurrence: US)
  Receive Date: 20131018
  Receipt Date: 20131119
  Transmission Date: 20140711
  Serious: No
  Sender: FDA-Public Use
  Company Number: US-009507513-1310USA001846

PATIENT
  Age: 33 Year
  Sex: Male

DRUGS (4)
  1. VICTRELIS [Suspect]
     Indication: HEPATITIS C
     Dosage: 4 CAPSULES 200 MG BY MOUTH THREE TIMES A DAY (EVERY 7-9) WITH FOOD THEREAFTER
     Dates: start: 201309
  2. REBETOL [Suspect]
     Dosage: 200 MG TAKE 3 TABLETS IN THE MORNING
     Dates: start: 201308
  3. REBETOL [Suspect]
     Dosage: 200 MG 2 TABLETS IN THE EVENING
     Dates: start: 201308
  4. PEGASYS [Suspect]
     Dosage: 180 MICROGRAM, QW
     Route: 058
     Dates: start: 201308

REACTIONS (2)
  - Injection site pain [Unknown]
  - Dysgeusia [Unknown]
